FAERS Safety Report 25767882 (Version 1)
Quarter: 2025Q3

REPORT INFORMATION
  Report Type: Other
  Country: EU (occurrence: EU)
  Receive Date: 20250905
  Receipt Date: 20250905
  Transmission Date: 20251020
  Serious: Yes (Other)
  Sender: INCYTE
  Company Number: None

PATIENT
  Age: 12 Year

DRUGS (4)
  1. RUXOLITINIB [Suspect]
     Active Substance: RUXOLITINIB
     Indication: Still^s disease
     Dosage: 15 MG, Q8H
  2. ACYCLOVIR [Suspect]
     Active Substance: ACYCLOVIR
     Indication: Herpes zoster
     Dosage: 830 MG, Q8H
  3. PREDNISOLONE SODIUM METAZOATE [Concomitant]
     Active Substance: PREDNISOLONE SODIUM METAZOATE
     Indication: Still^s disease
  4. ILARIS [Concomitant]
     Active Substance: CANAKINUMAB
     Indication: Still^s disease

REACTIONS (1)
  - Superficial vein thrombosis [Unknown]
